FAERS Safety Report 8190798-1 (Version None)
Quarter: 2012Q1

REPORT INFORMATION
  Report Type: 
  Country: None (occurrence: None)
  Receive Date: 20120307
  Receipt Date: 20120223
  Transmission Date: 20120608
  Serious: Yes (Hospitalization, Other)
  Sender: FDA-Public Use
  Company Number: PL-AMGEN-POLSP2012005980

PATIENT
  Age: 9 Year
  Sex: Female
  Weight: 25 kg

DRUGS (5)
  1. CALPEROS                           /00751519/ [Concomitant]
     Dosage: UNK
     Route: 048
  2. VITAMIN D [Concomitant]
     Dosage: UNK
     Route: 048
  3. ENBREL [Suspect]
     Indication: JUVENILE ARTHRITIS
     Dosage: 12.5 MG, 2X/WEEK, FORMULATION: SOL.
     Route: 058
     Dates: start: 20090709
  4. ENBREL [Suspect]
     Dosage: 12.5 MG, 2X/WEEK
     Route: 058
     Dates: end: 20120103
  5. METHOTREXATE [Concomitant]
     Dosage: UNK
     Route: 048
     Dates: start: 20080201

REACTIONS (3)
  - ENTEROBIASIS [None]
  - BLOOD IMMUNOGLOBULIN E INCREASED [None]
  - EOSINOPHILIA [None]
